FAERS Safety Report 9078550 (Version 1)
Quarter: 2013Q1

REPORT INFORMATION
  Report Type: Report from Study
  Country: US (occurrence: US)
  Receive Date: 20130130
  Receipt Date: 20130130
  Transmission Date: 20140127
  Serious: No
  Sender: FDA-Public Use
  Company Number: US-ABBOTT-12P-163-0960385-00

PATIENT
  Age: 56 None
  Sex: Female

DRUGS (8)
  1. HUMIRA 40 MG/0.8 ML PEN [Suspect]
     Indication: CROHN^S DISEASE
     Dates: start: 2009
  2. ENTOCORT [Concomitant]
     Indication: CROHN^S DISEASE
     Dosage: 9MG DAILY
     Route: 048
  3. CALCIUM [Concomitant]
     Indication: CROHN^S DISEASE
     Dosage: 2000MG DAILY
     Route: 048
  4. VITAMIN D [Concomitant]
     Indication: CROHN^S DISEASE
     Dosage: 50,000 IU WEEKLY
  5. CLARINEX [Concomitant]
     Indication: HYPERSENSITIVITY
     Dosage: 5MG DAILY
     Route: 048
  6. FLONASE [Concomitant]
     Indication: HYPERSENSITIVITY
     Dosage: DAILY
     Route: 045
  7. MUCINEX [Concomitant]
     Indication: HYPERSENSITIVITY
     Dosage: 1 TAB DAILY
     Route: 048
  8. ALLERGY SHOTS [Concomitant]
     Indication: HYPERSENSITIVITY
     Dosage: WEEKLY

REACTIONS (10)
  - Device malfunction [Recovered/Resolved]
  - Incorrect dose administered [Recovered/Resolved]
  - Device malfunction [Recovered/Resolved]
  - Incorrect dose administered [Recovered/Resolved]
  - Injection site haemorrhage [Recovered/Resolved]
  - Injection site vesicles [Recovered/Resolved]
  - Injection site haemorrhage [Recovered/Resolved]
  - Injection site vesicles [Recovered/Resolved]
  - Injection site bruising [Recovered/Resolved]
  - Increased tendency to bruise [Unknown]
